FAERS Safety Report 22272981 (Version 7)
Quarter: 2025Q4

REPORT INFORMATION
  Report Type: Report from Study
  Country: CA (occurrence: CA)
  Receive Date: 20230502
  Receipt Date: 20251105
  Transmission Date: 20260117
  Serious: Yes (Hospitalization, Other)
  Sender: JOHNSON AND JOHNSON
  Company Number: CA-JNJFOC-20230448484

PATIENT
  Age: 71 Year
  Sex: Female
  Weight: 79 kg

DRUGS (3)
  1. REMICADE [Suspect]
     Active Substance: INFLIXIMAB
     Indication: Colitis ulcerative
     Dosage: THERAPY START DATE: 29/SEP/2016. V2:EXPIRY DATE: 01-SEP-2025
     Route: 041
     Dates: start: 20091216
  2. REMICADE [Suspect]
     Active Substance: INFLIXIMAB
     Route: 041
     Dates: start: 20240326
  3. REMICADE [Suspect]
     Active Substance: INFLIXIMAB
     Route: 041
     Dates: start: 20250819

REACTIONS (11)
  - Endometrial cancer [Recovering/Resolving]
  - Breast cancer [Recovering/Resolving]
  - Anaphylactic reaction [Unknown]
  - Uterine dilation and curettage [Recovered/Resolved]
  - Pain in extremity [Unknown]
  - Contusion [Unknown]
  - Malaise [Unknown]
  - White blood cell count increased [Unknown]
  - Intra-abdominal fluid collection [Unknown]
  - Vaginal haemorrhage [Recovered/Resolved]
  - Constipation [Recovered/Resolved]

NARRATIVE: CASE EVENT DATE: 20230101
